FAERS Safety Report 23108338 (Version 1)
Quarter: 2023Q4

REPORT INFORMATION
  Report Type: Spontaneous
  Country: IT (occurrence: IT)
  Receive Date: 20231026
  Receipt Date: 20231026
  Transmission Date: 20240109
  Serious: Yes (Other)
  Sender: FDA-Public Use
  Company Number: None

PATIENT
  Age: 74 Year
  Sex: Male

DRUGS (3)
  1. FLUOROURACIL [Suspect]
     Active Substance: FLUOROURACIL
     Indication: Colon cancer
     Dosage: REAZIONI MANIFESTATE DOPO IL I CICLO - TERAPIA OGNI 14 GIORNI - INIZIO TERAPIA 15/02/2023
     Dates: start: 20230215, end: 20230215
  2. OXALIPLATIN [Suspect]
     Active Substance: OXALIPLATIN
     Indication: Colon cancer
     Dosage: REAZIONI MANIFESTATE DOPO IL I CICLO - TERAPIA OGNI 14 GIORNI - INIZIO TERAPIA 15/02/2023
     Dates: start: 20230215, end: 20230215
  3. LEVOLEUCOVORIN [Concomitant]
     Active Substance: LEVOLEUCOVORIN

REACTIONS (1)
  - Leukopenia [Not Recovered/Not Resolved]

NARRATIVE: CASE EVENT DATE: 20230227
